FAERS Safety Report 7960963-4 (Version None)
Quarter: 2011Q4

REPORT INFORMATION
  Report Type: 
  Country: None (occurrence: None)
  Receive Date: 20111202
  Receipt Date: 20111117
  Transmission Date: 20120403
  Serious: Yes (Other)
  Sender: FDA-Public Use
  Company Number: PHHY2011JP95083

PATIENT
  Age: 73 Year
  Sex: Female

DRUGS (5)
  1. RANIBIZUMAB [Suspect]
     Indication: POLYPOIDAL CHOROIDAL VASCULOPATHY
     Dosage: 0.05 ML ONCE EY
     Dates: start: 20090701, end: 20090701
  2. RANIBIZUMAB [Suspect]
     Indication: AGE-RELATED MACULAR DEGENERATION
     Dosage: 0.05 ML ONCE EY
     Dates: start: 20090701, end: 20090701
  3. VISUDYNE [Suspect]
     Indication: POLYPOIDAL CHOROIDAL VASCULOPATHY
     Dates: start: 20090801, end: 20090801
  4. VISUDYNE [Suspect]
     Indication: AGE-RELATED MACULAR DEGENERATION
     Dates: start: 20090801, end: 20090801
  5. GATIFLOXACIN [Concomitant]

REACTIONS (2)
  - RETINAL DETACHMENT [None]
  - CHOROIDAL DYSTROPHY [None]
